FAERS Safety Report 17174377 (Version 2)
Quarter: 2020Q1

REPORT INFORMATION
  Report Type: Report from Study
  Country: CA (occurrence: CA)
  Receive Date: 20191219
  Receipt Date: 20200227
  Transmission Date: 20200409
  Serious: Yes (Other)
  Sender: FDA-Public Use
  Company Number: CA-JNJFOC-20191214807

PATIENT
  Age: 54 Year
  Sex: Female
  Weight: 131.54 kg

DRUGS (3)
  1. ENTOCORT [Suspect]
     Active Substance: BUDESONIDE
     Indication: HAEMATOCHEZIA
     Route: 048
     Dates: start: 20191113
  2. ENTOCORT [Suspect]
     Active Substance: BUDESONIDE
     Indication: DIARRHOEA
     Route: 048
  3. SIMPONI [Suspect]
     Active Substance: GOLIMUMAB
     Indication: COLITIS ULCERATIVE
     Route: 058
     Dates: start: 20141202

REACTIONS (9)
  - Drug ineffective [Unknown]
  - Headache [Recovering/Resolving]
  - Cold sweat [Recovering/Resolving]
  - Defaecation urgency [Recovering/Resolving]
  - Haematochezia [Recovering/Resolving]
  - Abdominal pain [Recovering/Resolving]
  - Nausea [Recovering/Resolving]
  - Diarrhoea [Recovering/Resolving]
  - Flatulence [Recovering/Resolving]

NARRATIVE: CASE EVENT DATE: 2019
